FAERS Safety Report 10169759 (Version 1)
Quarter: 2014Q2

REPORT INFORMATION
  Report Type: Spontaneous
  Country: US (occurrence: US)
  Receive Date: 20140513
  Receipt Date: 20140513
  Transmission Date: 20141212
  Serious: Yes (Other)
  Sender: FDA-Public Use
  Company Number: US-ASTRAZENECA-2014SE30830

PATIENT
  Age: 598 Month
  Sex: Female
  Weight: 61.2 kg

DRUGS (3)
  1. TAMOXIFEN [Suspect]
     Indication: BREAST CANCER FEMALE
     Route: 048
     Dates: start: 2007, end: 2012
  2. FASLODEX [Suspect]
     Indication: BREAST CANCER METASTATIC
     Dosage: 2 SHOTS MONTHLY
     Route: 030
     Dates: start: 2012
  3. ADVIL [Concomitant]

REACTIONS (8)
  - Lung cancer metastatic [Unknown]
  - Pain in extremity [Unknown]
  - Musculoskeletal stiffness [Unknown]
  - Sciatica [Unknown]
  - Stress [Unknown]
  - Muscle spasms [Unknown]
  - Fatigue [Unknown]
  - Hot flush [Unknown]
